FAERS Safety Report 8988424 (Version 1)
Quarter: 2012Q4

REPORT INFORMATION
  Report Type: 
  Country: US (occurrence: None)
  Receive Date: 20121221
  Receipt Date: 20121221
  Transmission Date: 20130627
  Serious: No
  Sender: FDA-Public Use
  Company Number: None

PATIENT
  Sex: Male
  Weight: 91 kg

DRUGS (4)
  1. CAMPATH [Suspect]
  2. PENTOSTATIN [Suspect]
  3. RITUXIMAB (MOAB C2B8 ANTI CD20, CHIMERIC) [Suspect]
  4. PROCHLORPERAZINE [Concomitant]

REACTIONS (1)
  - Myelodysplastic syndrome [None]
